FAERS Safety Report 8349724-4 (Version None)
Quarter: 2012Q2

REPORT INFORMATION
  Report Type: 
  Country: None (occurrence: None)
  Receive Date: 20120510
  Receipt Date: 20120326
  Transmission Date: 20120825
  Serious: No
  Sender: FDA-Public Use
  Company Number: US-ABBOTT-12P-163-0918761-00

PATIENT
  Sex: Male
  Weight: 81.72 kg

DRUGS (4)
  1. LOVOXYL [Concomitant]
     Indication: PRODUCT USED FOR UNKNOWN INDICATION
  2. PREZIASTA [Concomitant]
     Indication: PRODUCT USED FOR UNKNOWN INDICATION
  3. NORVIR [Suspect]
     Indication: PRODUCT USED FOR UNKNOWN INDICATION
     Dates: start: 20110801, end: 20120314
  4. LITHIUM CARBONATE [Concomitant]
     Indication: BIPOLAR DISORDER

REACTIONS (7)
  - ABNORMAL DREAMS [None]
  - HALLUCINATION [None]
  - MALAISE [None]
  - AFFECT LABILITY [None]
  - AGITATION [None]
  - DEPERSONALISATION [None]
  - DIZZINESS [None]
